FAERS Safety Report 7745196-9 (Version None)
Quarter: 2011Q3

REPORT INFORMATION
  Report Type: 
  Country: None (occurrence: None)
  Receive Date: 20110907
  Receipt Date: 20110825
  Transmission Date: 20111222
  Serious: Yes (Other)
  Sender: FDA-Public Use
  Company Number: US-1186288

PATIENT
  Age: 52 Year
  Sex: Male
  Weight: 88.4514 kg

DRUGS (2)
  1. LATANOPROST [Suspect]
     Indication: INTRAOCULAR PRESSURE INCREASED
     Dosage: ( GTT QD OD OPHTHALMIC)
     Route: 047
     Dates: start: 20110514, end: 20110518
  2. COMBIGAN [Concomitant]

REACTIONS (5)
  - CORNEAL OEDEMA [None]
  - HEADACHE [None]
  - EYE PAIN [None]
  - ULCERATIVE KERATITIS [None]
  - VISUAL ACUITY REDUCED [None]
